FAERS Safety Report 19012511 (Version 3)
Quarter: 2021Q1

REPORT INFORMATION
  Report Type: Spontaneous
  Country: GB (occurrence: GB)
  Receive Date: 20210315
  Receipt Date: 20210324
  Transmission Date: 20210420
  Serious: Yes (Death, Congenital Anomaly, Other)
  Sender: FDA-Public Use
  Company Number: GB-PFIZER INC-2021233310

PATIENT
  Sex: Female

DRUGS (1)
  1. DEPO?PROVERA [Suspect]
     Active Substance: MEDROXYPROGESTERONE ACETATE
     Dosage: UNK
     Route: 064

REACTIONS (5)
  - Congenital absence of bile ducts [Unknown]
  - Maternal exposure during pregnancy [Fatal]
  - Viral infection [Unknown]
  - Liver disorder [Fatal]
  - Internal haemorrhage [Unknown]
